FAERS Safety Report 6727606-9 (Version None)
Quarter: 2010Q2

REPORT INFORMATION
  Report Type: 
  Country: None (occurrence: None)
  Receive Date: 20100517
  Receipt Date: 20100506
  Transmission Date: 20101027
  Serious: Yes (Other)
  Sender: FDA-Public Use
  Company Number: NO-BAXTER-2010BH012647

PATIENT
  Age: 60 Year
  Sex: Female

DRUGS (2)
  1. GAMMAGARD LIQUID [Suspect]
     Indication: LYMPHOMA
     Route: 065
     Dates: start: 20100421, end: 20100421
  2. GAMMAGARD LIQUID [Suspect]
     Indication: SECONDARY IMMUNODEFICIENCY
     Route: 065
     Dates: start: 20100421, end: 20100421

REACTIONS (3)
  - BLOOD PRESSURE INCREASED [None]
  - CHILLS [None]
  - FEELING COLD [None]
